FAERS Safety Report 24413106 (Version 1)
Quarter: 2024Q4

REPORT INFORMATION
  Report Type: Report from Study
  Country: CA (occurrence: CA)
  Receive Date: 20241008
  Receipt Date: 20241008
  Transmission Date: 20250115
  Serious: Yes (Other)
  Sender: NOVARTIS
  Company Number: CA-SANDOZ-SDZ2024CA071005

PATIENT
  Sex: Male

DRUGS (3)
  1. DEFERASIROX [Suspect]
     Active Substance: DEFERASIROX
     Indication: Sickle cell anaemia
     Dosage: 900 MG, QD, 2 DOSE EVERY N/A N/A
     Route: 048
     Dates: start: 20230307
  2. DEFERASIROX [Suspect]
     Active Substance: DEFERASIROX
     Indication: Hepatic iron overload
     Dosage: UNK, QD (360 MG X 2 + 180 MG X 1 DAILY)
     Route: 065
  3. DEFEROXAMINE [Concomitant]
     Active Substance: DEFEROXAMINE MESYLATE
     Indication: Product used for unknown indication
     Dosage: UNK
     Route: 065

REACTIONS (5)
  - Iron overload [Unknown]
  - Fear of injection [Unknown]
  - Sickle cell anaemia [Unknown]
  - Hepatic iron overload [Unknown]
  - Product use issue [Unknown]
